FAERS Safety Report 9063433 (Version 1)
Quarter: 2013Q1

REPORT INFORMATION
  Report Type: Report from Study
  Country: US (occurrence: US)
  Receive Date: 20130131
  Receipt Date: 20130131
  Transmission Date: 20140127
  Serious: No
  Sender: FDA-Public Use
  Company Number: US-ABBOTT-12P-163-1009487-00

PATIENT
  Age: 49 Year
  Sex: Female

DRUGS (18)
  1. HUMIRA [Suspect]
     Indication: COLITIS ULCERATIVE
     Route: 058
     Dates: start: 20121029, end: 20121029
  2. HUMIRA [Suspect]
     Route: 058
     Dates: start: 20121113, end: 20121113
  3. HUMIRA [Suspect]
     Route: 058
     Dates: start: 20121127, end: 20121127
  4. HUMIRA [Suspect]
     Route: 058
     Dates: start: 20121211, end: 20121211
  5. CALCIUM [Concomitant]
     Indication: BONE DISORDER
  6. NIACIN [Concomitant]
     Indication: PANCREATIC DISORDER
     Dosage: DAILY
  7. VITAMIN D [Concomitant]
     Indication: PRODUCT USED FOR UNKNOWN INDICATION
  8. LIPOFLAVONOID [Concomitant]
     Indication: TINNITUS
  9. SIMVASTATIN [Concomitant]
     Indication: BLOOD CHOLESTEROL INCREASED
     Dosage: DAILY
  10. FENOFIBRATE [Concomitant]
     Indication: BLOOD CHOLESTEROL INCREASED
     Dosage: DAILY
  11. ESTROGEL [Concomitant]
     Indication: HORMONE LEVEL ABNORMAL
     Dosage: 0.06/50 MG 2 PUMPS DAILY
  12. ZYRTEC [Concomitant]
     Indication: HYPERSENSITIVITY
  13. CLOBETASOL PROPIONATE [Concomitant]
     Indication: ECZEMA
  14. NEO-POLY-HC-OTIC-SOL [Concomitant]
     Indication: TINNITUS
     Dosage: 2-3 TIMES A DAY
  15. DULERA [Concomitant]
     Indication: ASTHMA
     Dosage: 200 MCG/5 MCG
  16. PROVENTIL [Concomitant]
     Indication: ASTHMA
  17. ZOMIG [Concomitant]
     Indication: HEADACHE
  18. HYOSCYAMINE [Concomitant]
     Indication: PANCREATIC DISORDER

REACTIONS (5)
  - Sinusitis [Not Recovered/Not Resolved]
  - Injection site erythema [Not Recovered/Not Resolved]
  - Injection site pruritus [Recovered/Resolved]
  - Lung infection [Not Recovered/Not Resolved]
  - Injection site reaction [Not Recovered/Not Resolved]
